FAERS Safety Report 8691284 (Version 5)
Quarter: 2013Q2

REPORT INFORMATION
  Report Type: Report from Study
  Country: JP (occurrence: JP)
  Receive Date: 20120730
  Receipt Date: 20130618
  Transmission Date: 20140414
  Serious: Yes (Other)
  Sender: FDA-Public Use
  Company Number: JP-BRISTOL-MYERS SQUIBB COMPANY-16789448

PATIENT
  Age: 41 Year
  Sex: Male

DRUGS (8)
  1. STOCRIN TABS 600 MG [Suspect]
     Indication: HIV INFECTION
     Dosage: DIVIDED DOSE FREQUENCY U?STOCRIN TABS 600 MG COATED TABS
     Route: 048
     Dates: start: 20000901, end: 20100711
  2. TRUVADA [Suspect]
     Indication: HIV INFECTION
     Dosage: DIVIDED DOSE FREQUENCY U?1DF: 1TAB
     Route: 048
     Dates: start: 20060830
  3. PEGINTERFERON ALFA-2B [Suspect]
     Indication: HEPATITIS C
     Dosage: POWDER FOR INJECTION
     Route: 058
     Dates: start: 20090824, end: 20100315
  4. REBETOL [Suspect]
     Indication: HEPATITIS C
     Dosage: CAPSULE
     Route: 048
     Dates: start: 20090824, end: 20100315
  5. ISENTRESS [Concomitant]
     Dosage: DOSAGE STRENGTH: 400MG, TABLETS
     Dates: start: 20100712
  6. RENIVACE [Concomitant]
     Dosage: TABLET
  7. ADVATE [Concomitant]
  8. GASTER [Concomitant]
     Dosage: TABLET

REACTIONS (3)
  - Hepatitis C [Not Recovered/Not Resolved]
  - Full blood count decreased [Recovered/Resolved]
  - Diabetes mellitus [Not Recovered/Not Resolved]
